FAERS Safety Report 14433561 (Version 5)
Quarter: 2019Q4

REPORT INFORMATION
  Report Type: Spontaneous
  Country: GB (occurrence: GB)
  Receive Date: 20180124
  Receipt Date: 20191106
  Transmission Date: 20200122
  Serious: Yes (Other)
  Sender: FDA-Public Use
  Company Number: GB-TAKEDA-2018TJP001886

PATIENT
  Age: 35 Year
  Sex: Female

DRUGS (10)
  1. COTRIMOXAZOLE [Concomitant]
     Active Substance: SULFAMETHOXAZOLE\TRIMETHOPRIM
     Dosage: 2880 MILLIGRAM, 1/WEEK
     Route: 048
  2. LEMTRADA [Suspect]
     Active Substance: ALEMTUZUMAB
     Dosage: 12 MILLIGRAM
     Route: 041
     Dates: start: 20180116
  3. METHYLPREDNISOLONE. [Concomitant]
     Active Substance: METHYLPREDNISOLONE
     Dosage: 500 MILLIGRAM, IN 100MLS NORMAL SALINE , 1 HOUR BEFORE
     Route: 042
  4. CYCLIZINE [Concomitant]
     Active Substance: CYCLIZINE
     Dosage: 50 MILLIGRAM
  5. ACYCLOVIR                          /00587301/ [Concomitant]
     Active Substance: ACYCLOVIR
     Dosage: 400 MILLIGRAM, QD
     Route: 048
  6. LEMTRADA [Suspect]
     Active Substance: ALEMTUZUMAB
     Indication: MULTIPLE SCLEROSIS
     Dosage: 12 MILLIGRAM
     Route: 041
     Dates: start: 201701
  7. CODEINE [Concomitant]
     Active Substance: CODEINE
     Dosage: 30 MILLIGRAM
  8. PARACETAMOL [Suspect]
     Active Substance: ACETAMINOPHEN
     Indication: PRODUCT USED FOR UNKNOWN INDICATION
     Dosage: 1 GRAM, AS NEEDED (UPTO 4 TIMES PER DAY AS REQUIRED)
     Route: 065
  9. LANSOPRAZOLE. [Suspect]
     Active Substance: LANSOPRAZOLE
     Indication: PRODUCT USED FOR UNKNOWN INDICATION
     Dosage: 15 MILLIGRAM, QD
     Route: 048
  10. CHLORPHENAMINE [Concomitant]
     Active Substance: CHLORPHENIRAMINE MALEATE
     Dosage: 10 MILLIGRAM, 30 MINUTES BEFORE LEMTRADA INFUSION
     Route: 042

REACTIONS (12)
  - Band sensation [Recovered/Resolved]
  - Pregnancy [Unknown]
  - Maternal exposure during pregnancy [Unknown]
  - Rash [Unknown]
  - Multiple sclerosis relapse [Recovered/Resolved]
  - Dizziness [Recovered/Resolved]
  - Insomnia [Unknown]
  - Chest discomfort [Recovered/Resolved]
  - Nausea [Recovered/Resolved]
  - Migraine [Not Recovered/Not Resolved]
  - Fatigue [Unknown]
  - Muscle spasms [Recovered/Resolved]

NARRATIVE: CASE EVENT DATE: 201801
